FAERS Safety Report 9299876 (Version 1)
Quarter: 2013Q1

REPORT INFORMATION
  Report Type: Spontaneous
  Country: US (occurrence: None)
  Receive Date: 20121231
  Receipt Date: 20121231
  Transmission Date: 20140127
  Serious: Yes (Hospitalization)
  Sender: FDA-Public Use
  Company Number: RB-45710-2012

PATIENT
  Sex: Male

DRUGS (2)
  1. SUBOXONE, 8 MG, BECKIT RICKETT [Suspect]
     Indication: DRUG DEPENDENCE
     Route: 064
     Dates: start: 201112, end: 20120906
  2. PRENATAL VITAMINS [Suspect]
     Indication: PREGNANCY
     Route: 064
     Dates: start: 201112, end: 20120906

REACTIONS (2)
  - Drug withdrawal syndrome neonatal [None]
  - Foetal exposure during pregnancy [None]
